FAERS Safety Report 17468959 (Version 1)
Quarter: 2020Q1

REPORT INFORMATION
  Report Type: Spontaneous
  Country: US (occurrence: US)
  Receive Date: 20200215
  Receipt Date: 20200215
  Transmission Date: 20200409
  Serious: Yes (Life-Threatening, Hospitalization, Disabling, Other)
  Sender: FDA-Public Use
  Company Number: None

PATIENT
  Age: 38 Year
  Sex: Female
  Weight: 76.5 kg

DRUGS (2)
  1. ACD-A [Suspect]
     Active Substance: ANHYDROUS CITRIC ACID\DEXTROSE MONOHYDRATE\SODIUM CITRATE
     Indication: BLOOD DONOR
     Dosage: ?          OTHER FREQUENCY:PLASMAPHERESIS;?
     Route: 042
     Dates: start: 20200206, end: 20200211
  2. SODIUM CITRATE 4% W/V ANTICOAGULANT [Suspect]
     Active Substance: TRISODIUM CITRATE DIHYDRATE

REACTIONS (6)
  - Pain [None]
  - Hypersensitivity [None]
  - Swelling [None]
  - Rash [None]
  - Urticaria [None]
  - Pruritus [None]

NARRATIVE: CASE EVENT DATE: 20200212
